FAERS Safety Report 18069048 (Version 1)
Quarter: 2020Q3

REPORT INFORMATION
  Report Type: Spontaneous
  Country: FR (occurrence: FR)
  Receive Date: 20200725
  Receipt Date: 20200725
  Transmission Date: 20201103
  Serious: Yes (Hospitalization)
  Sender: FDA-Public Use
  Company Number: FR-CADILA HEALTHCARE LIMITED-FR-ZYDUS-024007

PATIENT

DRUGS (9)
  1. TEMESTA [Concomitant]
  2. AGOMELATINE [Concomitant]
     Active Substance: AGOMELATINE
     Dosage: ()
  3. TERALITHE [Concomitant]
     Active Substance: LITHIUM CARBONATE
     Dosage: ()
  4. SERESTA [Concomitant]
     Active Substance: OXAZEPAM
  5. DEROXAT [Concomitant]
     Active Substance: PAROXETINE HYDROCHLORIDE
  6. PRAVASTATIN. [Suspect]
     Active Substance: PRAVASTATIN
     Indication: HYPERCHOLESTEROLAEMIA
     Route: 048
     Dates: end: 20180228
  7. LEVOTHYROX [Concomitant]
     Active Substance: LEVOTHYROXINE
     Dosage: ()
  8. INEXIUM [Concomitant]
     Active Substance: ESOMEPRAZOLE
     Dosage: ()
  9. PREVISCAN (FRANCE) [Suspect]
     Active Substance: FLUINDIONE
     Indication: PULMONARY EMBOLISM
     Dosage: 1 DOSAGE FORM,(INTERVAL :1 DAYS)
     Route: 048
     Dates: end: 20180228

REACTIONS (1)
  - Cerebellar haematoma [Recovering/Resolving]

NARRATIVE: CASE EVENT DATE: 20180228
